FAERS Safety Report 6644893-6 (Version None)
Quarter: 2010Q1

REPORT INFORMATION
  Report Type: 
  Country: None (occurrence: None)
  Receive Date: 20100322
  Receipt Date: 20100309
  Transmission Date: 20100710
  Serious: Yes (Other)
  Sender: FDA-Public Use
  Company Number: PHEH2010US02687

PATIENT
  Sex: Female

DRUGS (3)
  1. RECLAST [Suspect]
     Indication: OSTEOPOROSIS
     Dosage: 5 MG, ONCE/SINGLE
     Dates: start: 20100219, end: 20100219
  2. ACCUPRIL [Concomitant]
     Dosage: 20 MG, BID
  3. VIVELLE-DOT [Concomitant]
     Dosage: 0.375 UNK, UNK
     Route: 062
     Dates: start: 19800201

REACTIONS (15)
  - ABDOMINAL PAIN [None]
  - CHEST PAIN [None]
  - CHILLS [None]
  - FATIGUE [None]
  - FLANK PAIN [None]
  - HYPOAESTHESIA [None]
  - INFLUENZA LIKE ILLNESS [None]
  - MUSCULOSKELETAL PAIN [None]
  - MYOCARDIAL INFARCTION [None]
  - NIGHT SWEATS [None]
  - OROPHARYNGEAL PAIN [None]
  - PAIN IN EXTREMITY [None]
  - PAIN IN JAW [None]
  - PALPITATIONS [None]
  - PERIPHERAL COLDNESS [None]
